FAERS Safety Report 21675318 (Version 1)
Quarter: 2022Q4

REPORT INFORMATION
  Report Type: Spontaneous
  Country: CN (occurrence: CN)
  Receive Date: 20221202
  Receipt Date: 20221202
  Transmission Date: 20230113
  Serious: Yes (Hospitalization, Other)
  Sender: FDA-Public Use
  Company Number: CN-002147023-NVSC2022CN278515

PATIENT
  Age: 78 Year
  Sex: Male
  Weight: 69 kg

DRUGS (3)
  1. HYDROCHLOROTHIAZIDE\VALSARTAN [Suspect]
     Active Substance: HYDROCHLOROTHIAZIDE\VALSARTAN
     Indication: Hypertension
     Dosage: 1 DOSAGE FORM, QD (MORNING)
     Route: 048
     Dates: start: 20151101, end: 20221123
  2. NIFEDIPINE [Concomitant]
     Active Substance: NIFEDIPINE
     Indication: Hypertension
     Dosage: 15 MG, QD
     Route: 048
     Dates: start: 20151101, end: 20221123
  3. NIFEDIPINE [Concomitant]
     Active Substance: NIFEDIPINE
     Dosage: 0.5 DOSAGE FORM, QD (EVENING)
     Route: 065

REACTIONS (4)
  - Blood potassium decreased [Recovering/Resolving]
  - Large intestine polyp [Unknown]
  - Gastric polyps [Unknown]
  - Blood pressure systolic increased [Unknown]

NARRATIVE: CASE EVENT DATE: 20221122
